FAERS Safety Report 23278139 (Version 1)
Quarter: 2023Q4

REPORT INFORMATION
  Report Type: Spontaneous
  Country: US (occurrence: None)
  Receive Date: 20231208
  Receipt Date: 20231208
  Transmission Date: 20240110
  Serious: Yes (Other)
  Sender: FDA-Public Use
  Company Number: None

PATIENT
  Age: 70 Year
  Sex: Male

DRUGS (3)
  1. GLATIRAMER [Suspect]
     Active Substance: GLATIRAMER
     Indication: Multiple sclerosis
     Dosage: FREQUENCY : 3 TIMES A WEEK;?
     Route: 058
     Dates: start: 20180511
  2. CRESTOR [Concomitant]
     Active Substance: ROSUVASTATIN CALCIUM
  3. LEXAPRO [Concomitant]

REACTIONS (2)
  - Hip arthroplasty [None]
  - Therapy interrupted [None]

NARRATIVE: CASE EVENT DATE: 20231120
